FAERS Safety Report 8939844 (Version 2)
Quarter: 2013Q1

REPORT INFORMATION
  Report Type: Spontaneous
  Country: US (occurrence: US)
  Receive Date: 20121203
  Receipt Date: 20130118
  Transmission Date: 20140127
  Serious: Yes (Other)
  Sender: FDA-Public Use
  Company Number: US-PFIZER INC-2012302132

PATIENT
  Age: 56 Year
  Sex: Male
  Weight: 68 kg

DRUGS (4)
  1. GEODON [Suspect]
     Indication: BIPOLAR DISORDER
     Dosage: 40 MG, 3X/DAY
     Route: 048
     Dates: start: 20110227
  2. GEODON [Suspect]
     Indication: PSYCHOTIC DISORDER
  3. DEPAKOTE ER [Concomitant]
     Dosage: 500 MG, 2X/DAY
  4. CLONAZEPAM [Concomitant]
     Dosage: 2 MG, 1X/DAY (AT BEDTIME)
     Route: 048

REACTIONS (2)
  - Drug ineffective [Not Recovered/Not Resolved]
  - Violence-related symptom [Not Recovered/Not Resolved]
